FAERS Safety Report 9657844 (Version 1)
Quarter: 2013Q4

REPORT INFORMATION
  Report Type: Spontaneous
  Country: US (occurrence: US)
  Receive Date: 20131030
  Receipt Date: 20131030
  Transmission Date: 20140711
  Serious: No
  Sender: FDA-Public Use
  Company Number: US-ENDO PHARMACEUTICALS INC.-HCDA20130067

PATIENT
  Sex: Female
  Weight: 100.79 kg

DRUGS (1)
  1. HYDROCODONE/ACETAMINOPHEN TABLETS 10MG/500MG [Suspect]
     Indication: PAIN
     Dosage: 10/500 MG
     Route: 048
     Dates: start: 201201, end: 2012

REACTIONS (3)
  - Intervertebral disc protrusion [Not Recovered/Not Resolved]
  - Intervertebral disc degeneration [Not Recovered/Not Resolved]
  - Psychomotor hyperactivity [Recovered/Resolved]
